FAERS Safety Report 24341268 (Version 2)
Quarter: 2024Q4

REPORT INFORMATION
  Report Type: Report from Study
  Country: US (occurrence: US)
  Receive Date: 20240919
  Receipt Date: 20241022
  Transmission Date: 20250115
  Serious: Yes (Hospitalization)
  Sender: ABBVIE
  Company Number: US-ABBVIE-5929054

PATIENT
  Sex: Male

DRUGS (1)
  1. RINVOQ [Suspect]
     Active Substance: UPADACITINIB
     Indication: Dermatitis atopic
     Route: 048
     Dates: start: 20240807

REACTIONS (3)
  - Diverticulitis [Recovered/Resolved]
  - Malaise [Unknown]
  - Full blood count increased [Unknown]

NARRATIVE: CASE EVENT DATE: 20240101
